FAERS Safety Report 6018037-8 (Version None)
Quarter: 2008Q4

REPORT INFORMATION
  Report Type: 
  Country: None (occurrence: None)
  Receive Date: 20081223
  Receipt Date: 20081215
  Transmission Date: 20090506
  Serious: Yes (Hospitalization, Other)
  Sender: FDA-Public Use
  Company Number: US-AMGEN-KDL270406

PATIENT
  Sex: Male
  Weight: 49.8 kg

DRUGS (37)
  1. ARANESP [Suspect]
     Indication: DIALYSIS
     Route: 042
     Dates: start: 20070418, end: 20080321
  2. EPOGEN [Suspect]
     Indication: DIALYSIS
     Dates: end: 20070101
  3. SENSIPAR [Concomitant]
     Indication: HYPERPARATHYROIDISM SECONDARY
  4. CLONIDINE [Concomitant]
  5. PROTONIX [Concomitant]
  6. LISINOPRIL [Concomitant]
  7. VITAMIN B COMPLEX WITH C [Concomitant]
  8. TOPRAL [Concomitant]
  9. COUMADIN [Concomitant]
  10. NORVASC [Concomitant]
  11. VALIUM [Concomitant]
  12. AMBIEN [Concomitant]
  13. HYDROCODONE BITARTRATE + ACETAMINOPHEN [Concomitant]
  14. RENAGEL [Concomitant]
  15. ZEMPLAR [Concomitant]
     Route: 042
  16. METOPROLOL [Concomitant]
  17. ATAZANAVIR [Concomitant]
  18. CELECOXIB [Concomitant]
  19. CLONAZEPAM [Concomitant]
  20. CLOTRIMAZOLE [Concomitant]
  21. FOLIC ACID [Concomitant]
  22. LASIX [Concomitant]
  23. LACTULOSE [Concomitant]
  24. METHYLPHENIDATE HCL [Concomitant]
  25. REGLAN [Concomitant]
  26. OXYCODONE HCL [Concomitant]
  27. OXYCONTIN [Concomitant]
  28. PANTOPRAZOLE SODIUM [Concomitant]
  29. SERTRALINE [Concomitant]
  30. SODIUM CITRATE [Concomitant]
  31. VALGANCICLOVIR HCL [Concomitant]
  32. TACROLIMUS [Concomitant]
  33. PREDNISONE TAB [Concomitant]
  34. MYCOPHENOLIC ACID [Concomitant]
  35. DOCUSATE SODIUM [Concomitant]
  36. ACETAMINOPHEN [Concomitant]
  37. SENNA [Concomitant]

REACTIONS (11)
  - ANAEMIA [None]
  - ANTI-ERYTHROPOIETIN ANTIBODY POSITIVE [None]
  - CYTOMEGALOVIRUS ANTIBODY POSITIVE [None]
  - DIABETIC KETOACIDOSIS [None]
  - HYPERKALAEMIA [None]
  - HYPOALDOSTERONISM [None]
  - IMPAIRED GASTRIC EMPTYING [None]
  - IRON DEFICIENCY [None]
  - JOINT CONTRACTURE [None]
  - MALNUTRITION [None]
  - PAIN [None]
